FAERS Safety Report 25930490 (Version 1)
Quarter: 2025Q4

REPORT INFORMATION
  Report Type: Spontaneous
  Country: EU (occurrence: EU)
  Receive Date: 20251016
  Receipt Date: 20251016
  Transmission Date: 20260118
  Serious: Yes (Other)
  Sender: MYLAN
  Company Number: None

PATIENT
  Age: 51 Year
  Sex: Female

DRUGS (6)
  1. PACLITAXEL [Suspect]
     Active Substance: PACLITAXEL
     Indication: Endometrial adenocarcinoma
     Dosage: UNK (DOSE: UNKNOWN.)
     Dates: start: 20170606, end: 20170606
  2. CARBOPLATIN [Suspect]
     Active Substance: CARBOPLATIN
     Indication: Endometrial adenocarcinoma
     Dosage: UNK (FIRST TREATMENT WAS RECEIVED ON 06JUN2017: DOSE: UNKNOWN DOSE.)
  3. CARBOPLATIN [Suspect]
     Active Substance: CARBOPLATIN
     Dosage: UNK (SECOND TREATMENT RECEIVED ON 26JUN2017, DOSE: UNKNOWN DOSE)
  4. CARBOPLATIN [Suspect]
     Active Substance: CARBOPLATIN
     Dosage: 700 MILLIGRAM (THIRD TREATMENT RECEIVED IN JUL2017, DOSE: 700 MG.)
  5. CARBOPLATIN [Suspect]
     Active Substance: CARBOPLATIN
     Dosage: UNK (FOURTH TREATMENT RECEIVED IN AUG2017, DOSE: UNKNOWN DOSE )
  6. CARBOPLATIN [Suspect]
     Active Substance: CARBOPLATIN
     Dosage: UNK (FIFTH TREATMENT RECEIVED ON 29AUG2017, DOSE: UNKNOWN DOSE.)

REACTIONS (6)
  - Neuropathy peripheral [Unknown]
  - Sensory disturbance [Unknown]
  - Cerebral disorder [Unknown]
  - Neuralgia [Unknown]
  - Diarrhoea [Unknown]
  - Constipation [Unknown]

NARRATIVE: CASE EVENT DATE: 20170101
